FAERS Safety Report 10949357 (Version 8)
Quarter: 2020Q1

REPORT INFORMATION
  Report Type: Spontaneous
  Country: JP (occurrence: JP)
  Receive Date: 20150324
  Receipt Date: 20200302
  Transmission Date: 20200409
  Serious: Yes (Hospitalization, Other)
  Sender: FDA-Public Use
  Company Number: JP-ACTELION-A-CH2013-77422

PATIENT
  Age: 26 Year
  Sex: Male

DRUGS (22)
  1. BRAZAVES [Interacting]
     Active Substance: MIGLUSTAT
     Dosage: 400 MG, QD
     Route: 048
     Dates: start: 20130202, end: 20130228
  2. BRAZAVES [Interacting]
     Active Substance: MIGLUSTAT
     Dosage: 200 MG, TID
     Route: 048
     Dates: start: 20150918
  3. URSO [Concomitant]
     Active Substance: URSODIOL
  4. ARTANE [Concomitant]
     Active Substance: TRIHEXYPHENIDYL HYDROCHLORIDE
  5. BFLUID [Concomitant]
     Active Substance: AMINO ACIDS\DEXTROSE\ELECTROLYTES NOS\VITAMINS
  6. SOLITA-T3 [Concomitant]
     Active Substance: POTASSIUM CHLORIDE\SODIUM CHLORIDE\SODIUM LACTATE
  7. BRAZAVES [Interacting]
     Active Substance: MIGLUSTAT
     Dosage: 500 MG, QD
     Route: 048
     Dates: start: 20130301, end: 20150209
  8. UNASYN [Interacting]
     Active Substance: AMPICILLIN SODIUM\SULBACTAM SODIUM
     Dosage: 3 G, QID
     Route: 048
     Dates: start: 20150520, end: 20150525
  9. LORATADINE. [Concomitant]
     Active Substance: LORATADINE
  10. BRAZAVES [Suspect]
     Active Substance: MIGLUSTAT
     Indication: NIEMANN-PICK DISEASE
     Dosage: 200 MG, TID
     Route: 048
     Dates: start: 20121210, end: 20121213
  11. BISOLVON [Concomitant]
     Active Substance: BROMHEXINE HYDROCHLORIDE
  12. UNASYN [Interacting]
     Active Substance: AMPICILLIN SODIUM\SULBACTAM SODIUM
     Indication: PNEUMONIA
     Dosage: 3 G, QID
     Route: 048
     Dates: start: 20150209, end: 20150216
  13. BRAZAVES [Interacting]
     Active Substance: MIGLUSTAT
     Dosage: 500 MG, QD
     Route: 048
     Dates: start: 20150213, end: 20150302
  14. UNASYN [Interacting]
     Active Substance: AMPICILLIN SODIUM\SULBACTAM SODIUM
     Indication: PYREXIA
     Dosage: 3 G, QID
     Route: 048
     Dates: start: 20150227, end: 20150302
  15. VEEN D [Concomitant]
     Active Substance: CALCIUM CHLORIDE\DEXTROSE\POTASSIUM CHLORIDE\SODIUM ACETATE\SODIUM CHLORIDE
  16. BRAZAVES [Interacting]
     Active Substance: MIGLUSTAT
     Dosage: 100 MG, TID
     Route: 048
     Dates: start: 20121214, end: 20130201
  17. AMBROXOL [Concomitant]
     Active Substance: AMBROXOL
  18. SODIUM CHLORIDE. [Concomitant]
     Active Substance: SODIUM CHLORIDE
  19. VEEN-F [Concomitant]
     Active Substance: CALCIUM CHLORIDE\MAGNESIUM CHLORIDE\POTASSIUM CHLORIDE\SODIUM ACETATE\SODIUM CHLORIDE
  20. ATARAX-P [Concomitant]
     Active Substance: HYDROXYZINE HYDROCHLORIDE
  21. BRAZAVES [Interacting]
     Active Substance: MIGLUSTAT
     Dosage: 500 MG, QD
     Route: 048
     Dates: start: 20150309
  22. INFLUENZA VACCINE [Concomitant]
     Active Substance: INFLUENZA VIRUS VACCINE

REACTIONS (9)
  - Cytopenia [Recovered/Resolved]
  - Pyrexia [Recovered/Resolved]
  - Pneumonia aspiration [Recovered/Resolved]
  - Nausea [Recovered/Resolved]
  - Drug interaction [Recovered/Resolved]
  - White blood cell count decreased [Recovered/Resolved]
  - Platelet count decreased [Recovered/Resolved]
  - Red blood cell count decreased [Recovered/Resolved]
  - Diarrhoea [Recovered/Resolved]

NARRATIVE: CASE EVENT DATE: 20121213
